FAERS Safety Report 23377754 (Version 1)
Quarter: 2024Q1

REPORT INFORMATION
  Report Type: Spontaneous
  Country: US (occurrence: None)
  Receive Date: 20240105
  Receipt Date: 20240105
  Transmission Date: 20240410
  Serious: Yes (Death)
  Sender: FDA-Public Use
  Company Number: None

PATIENT
  Age: 95 Year
  Sex: Male

DRUGS (1)
  1. ERLEADA [Suspect]
     Active Substance: APALUTAMIDE
     Indication: Prostate cancer
     Dosage: OTHER QUANTITY : 4TABLETS;?FREQUENCY : DAILY;?
     Route: 048
     Dates: start: 20221014, end: 20240105

REACTIONS (1)
  - Death [None]

NARRATIVE: CASE EVENT DATE: 20231231
